FAERS Safety Report 16703913 (Version 1)
Quarter: 2019Q3

REPORT INFORMATION
  Report Type: Spontaneous
  Country: NL (occurrence: GB)
  Receive Date: 20190814
  Receipt Date: 20190814
  Transmission Date: 20191004
  Serious: Yes (Hospitalization, Disabling, Other)
  Sender: FDA-Public Use
  Company Number: GB-FRESENIUS KABI-FK201908848

PATIENT
  Age: 49 Year
  Sex: Female
  Weight: 50.2 kg

DRUGS (8)
  1. FILGRASTIM [Concomitant]
     Active Substance: FILGRASTIM
     Indication: PRODUCT USED FOR UNKNOWN INDICATION
     Dosage: 30 MU FOR 5 DAYS POST CHEMO
     Route: 058
     Dates: start: 201901, end: 201904
  2. CIPROFLOXACIN. [Concomitant]
     Active Substance: CIPROFLOXACIN
     Indication: PRODUCT USED FOR UNKNOWN INDICATION
     Dosage: 500 MG 1G POST CHOMO FOR WEEK
     Route: 048
     Dates: start: 201901, end: 201904
  3. NO DRUG NAME [Suspect]
     Active Substance: UNSPECIFIED INGREDIENT
     Indication: PRODUCT USED FOR UNKNOWN INDICATION
     Route: 048
     Dates: start: 201901
  4. CARBOPLATIN (MANUFACTURER UNKNOWN) [Suspect]
     Active Substance: CARBOPLATIN
     Indication: LUNG ADENOCARCINOMA
     Dosage: AREA UNDER THE CURVE (AUC) 4, Q3W
     Route: 042
     Dates: start: 20190124, end: 20190404
  5. SENNA ALEXANDRINA [Concomitant]
     Active Substance: SENNA LEAF
     Indication: PRODUCT USED FOR UNKNOWN INDICATION
     Dosage: 2 TAB, PRN
     Route: 048
     Dates: start: 201901
  6. FOLIC ACID. [Concomitant]
     Active Substance: FOLIC ACID
     Indication: LUNG ADENOCARCINOMA
     Dosage: UNK MICROGRAM
     Route: 048
     Dates: start: 201901, end: 201904
  7. PEMBROLIZUMAB. [Suspect]
     Active Substance: PEMBROLIZUMAB
     Indication: LUNG ADENOCARCINOMA
     Dosage: 200 MILLIGRAM, Q3W
     Route: 042
     Dates: start: 20190124, end: 20190307
  8. PEMETREXED DISODIUM [Suspect]
     Active Substance: PEMETREXED DISODIUM
     Indication: LUNG ADENOCARCINOMA
     Dosage: 800 MILLIGRAM  (100 PERCENT DOSE BASED ON WT AT TIME), Q3W
     Route: 042
     Dates: start: 20190124, end: 20190404

REACTIONS (7)
  - Pneumonitis [Recovered/Resolved]
  - Renal tubular injury [Unknown]
  - Blood creatinine increased [Not Recovered/Not Resolved]
  - Malaise [Unknown]
  - Tubulointerstitial nephritis [Unknown]
  - Dyspnoea [Recovered/Resolved]
  - Fatigue [Unknown]
